FAERS Safety Report 16808940 (Version 1)
Quarter: 2019Q3

REPORT INFORMATION
  Report Type: Spontaneous
  Country: IT (occurrence: IT)
  Receive Date: 20190916
  Receipt Date: 20190916
  Transmission Date: 20191005
  Serious: Yes (Death)
  Sender: FDA-Public Use
  Company Number: IT-ASTRAZENECA-2019SF30017

PATIENT
  Age: 56 Year
  Sex: Female

DRUGS (2)
  1. GEFITINIB. [Suspect]
     Active Substance: GEFITINIB
     Indication: EGFR GENE MUTATION
     Route: 048
     Dates: start: 201405
  2. GEFITINIB. [Suspect]
     Active Substance: GEFITINIB
     Indication: LUNG ADENOCARCINOMA
     Route: 048
     Dates: start: 201405

REACTIONS (2)
  - Drug resistance [Unknown]
  - Disease progression [Fatal]
